FAERS Safety Report 5098760-2 (Version None)
Quarter: 2006Q3

REPORT INFORMATION
  Report Type: 
  Country: None (occurrence: None)
  Receive Date: 20060907
  Receipt Date: 20060825
  Transmission Date: 20061208
  Serious: Yes (Hospitalization)
  Sender: FDA-Public Use
  Company Number: 2006060205

PATIENT
  Age: 56 Year
  Sex: Female

DRUGS (10)
  1. EPOPROSTENOL [Suspect]
     Indication: CREST SYNDROME
     Route: 042
     Dates: start: 20050401
  2. WARFARIN SODIUM [Suspect]
     Indication: PULMONARY HYPERTENSION
     Route: 048
     Dates: start: 20050401, end: 20060429
  3. SILDENAFIL [Suspect]
     Indication: PULMONARY HYPERTENSION
     Dosage: 80MG THREE TIMES PER DAY
     Route: 048
     Dates: start: 20060101
  4. FUROSEMIDE [Concomitant]
     Route: 048
     Dates: start: 20050401
  5. SPIRONOLACTONE [Concomitant]
     Route: 048
     Dates: start: 20050401
  6. PARACETAMOL [Concomitant]
     Route: 048
     Dates: start: 20041201
  7. DIHYDROCODEINE [Concomitant]
     Route: 048
     Dates: start: 20041201
  8. LANSOPRAZOLE [Concomitant]
     Dosage: 30MG PER DAY
     Route: 048
     Dates: start: 20050801, end: 20060429
  9. CITALOPRAM [Concomitant]
     Route: 048
     Dates: start: 20041201
  10. ESOMEPRAZOLE MAGNESIUM [Concomitant]
     Dosage: 40MG TWICE PER DAY

REACTIONS (3)
  - GASTRIC ULCER [None]
  - GASTROINTESTINAL HAEMORRHAGE [None]
  - HELICOBACTER INFECTION [None]
